FAERS Safety Report 12805277 (Version 1)
Quarter: 2016Q4

REPORT INFORMATION
  Report Type: Spontaneous
  Country: US (occurrence: US)
  Receive Date: 20161004
  Receipt Date: 20161004
  Transmission Date: 20170207
  Serious: No
  Sender: FDA-Public Use
  Company Number: US-ACCORD-033434

PATIENT

DRUGS (1)
  1. GLIMEPERIDE ACCORD [Suspect]
     Active Substance: GLIMEPIRIDE
     Indication: PRODUCT USED FOR UNKNOWN INDICATION
     Dosage: STRENGTH: 4 MG

REACTIONS (4)
  - Drug ineffective [Unknown]
  - Product quality issue [None]
  - Therapy non-responder [Unknown]
  - Product substitution issue [Unknown]
